FAERS Safety Report 8667360 (Version 2)
Quarter: 2012Q4

REPORT INFORMATION
  Report Type: 
  Country: US (occurrence: US)
  Receive Date: 20120717
  Receipt Date: 20121120
  Transmission Date: 20130627
  Serious: No
  Sender: FDA-Public Use
  Company Number: US-PFIZER INC-2011212040

PATIENT
  Age: 41 Year
  Sex: Female
  Weight: 77.1 kg

DRUGS (1)
  1. SEPTRA DS [Suspect]
     Dosage: UNK
     Route: 048

REACTIONS (1)
  - Hypersensitivity [Unknown]
